FAERS Safety Report 21694941 (Version 1)
Quarter: 2022Q4

REPORT INFORMATION
  Report Type: Report from Study
  Country: US (occurrence: US)
  Receive Date: 20221207
  Receipt Date: 20221207
  Transmission Date: 20230113
  Serious: No
  Sender: FDA-Public Use
  Company Number: US-ABBVIE-4190271

PATIENT
  Sex: Male

DRUGS (1)
  1. HUMIRA [Suspect]
     Active Substance: ADALIMUMAB
     Indication: Crohn^s disease
     Dosage: CITRATE FREE, STRENGTH:40MG, LAST ADMIN DATE:2022, COVID ONSET DATE : 2022
     Route: 058
     Dates: start: 20220810

REACTIONS (1)
  - COVID-19 [Recovering/Resolving]
